FAERS Safety Report 12140949 (Version 5)
Quarter: 2016Q2

REPORT INFORMATION
  Report Type: Spontaneous
  Country: JP (occurrence: JP)
  Receive Date: 20160303
  Receipt Date: 20160531
  Transmission Date: 20160815
  Serious: Yes (Death, Life-Threatening, Other)
  Sender: FDA-Public Use
  Company Number: JP-ACTELION-A-CH2016-132383

PATIENT
  Age: 60 Year
  Sex: Female

DRUGS (22)
  1. FUROSEMIDE. [Concomitant]
     Active Substance: FUROSEMIDE
  2. TREPROSTINIL [Concomitant]
     Active Substance: TREPROSTINIL
  3. ESOMEPRAZOLE MAGNESIUM. [Concomitant]
     Active Substance: ESOMEPRAZOLE MAGNESIUM
  4. TORASEMIDE [Concomitant]
     Active Substance: TORSEMIDE
  5. ENTECAVIR. [Concomitant]
     Active Substance: ENTECAVIR
  6. ALLOPURINOL. [Concomitant]
     Active Substance: ALLOPURINOL
  7. POLAPREZINC [Concomitant]
     Active Substance: POLAPREZINC
  8. MAGNESIUM OXIDE. [Concomitant]
     Active Substance: MAGNESIUM OXIDE
  9. LACTOMIN [Concomitant]
     Active Substance: LACTOBACILLUS ACIDOPHILUS
  10. LOXOPROFEN SODIUM [Concomitant]
     Active Substance: LOXOPROFEN SODIUM
  11. ACETAMINOPHEN W/CODEINE PHOSPHATE [Concomitant]
  12. TOLVAPTAN [Concomitant]
     Active Substance: TOLVAPTAN
  13. SPIRONOLACTONE. [Concomitant]
     Active Substance: SPIRONOLACTONE
  14. WARFARIN POTASSIUM [Concomitant]
     Active Substance: WARFARIN POTASSIUM
  15. SULFAMETHOXAZOLE AND TRIMETHOPRIM [Concomitant]
     Active Substance: SULFAMETHOXAZOLE\TRIMETHOPRIM
  16. OXYGEN. [Concomitant]
     Active Substance: OXYGEN
  17. OPSUMIT [Suspect]
     Active Substance: MACITENTAN
     Indication: PORTOPULMONARY HYPERTENSION
     Dosage: 10 MG, QD
     Route: 048
     Dates: start: 20150903
  18. SENNOSIDE [Concomitant]
     Active Substance: SENNOSIDES
  19. LUBIPROSTONE [Concomitant]
     Active Substance: LUBIPROSTONE
  20. SILDENAFIL CITRATE. [Concomitant]
     Active Substance: SILDENAFIL CITRATE
  21. POTASSIUM CHLORIDE. [Concomitant]
     Active Substance: POTASSIUM CHLORIDE
  22. REBAMIPIDE [Concomitant]
     Active Substance: REBAMIPIDE

REACTIONS (11)
  - Lymphoma [Fatal]
  - Concomitant disease aggravated [Fatal]
  - Hepatic cirrhosis [Not Recovered/Not Resolved]
  - Haematocrit decreased [Fatal]
  - Haemoglobin decreased [Fatal]
  - White blood cell count decreased [Fatal]
  - Concomitant disease progression [Not Recovered/Not Resolved]
  - Gamma-glutamyltransferase increased [Not Recovered/Not Resolved]
  - Blood alkaline phosphatase increased [Not Recovered/Not Resolved]
  - Platelet count decreased [Fatal]
  - Red blood cell count decreased [Fatal]

NARRATIVE: CASE EVENT DATE: 2015
